FAERS Safety Report 7786903-9 (Version None)
Quarter: 2011Q3

REPORT INFORMATION
  Report Type: 
  Country: None (occurrence: None)
  Receive Date: 20110929
  Receipt Date: 20110923
  Transmission Date: 20111222
  Serious: Yes (Death, Other)
  Sender: FDA-Public Use
  Company Number: DE-BRISTOL-MYERS SQUIBB COMPANY-16080921

PATIENT
  Age: 33 Year
  Sex: Male
  Weight: 89 kg

DRUGS (12)
  1. DAUNORUBICIN HCL [Suspect]
     Indication: ACUTE MYELOID LEUKAEMIA
     Dates: start: 20110906, end: 20110906
  2. MEROPENEM [Suspect]
     Route: 042
     Dates: start: 20110916, end: 20110920
  3. NOVALGIN [Concomitant]
     Indication: ANALGESIC THERAPY
     Route: 042
     Dates: start: 20110919, end: 20110919
  4. COLISTIMETHATE SODIUM [Suspect]
     Dosage: 1 DF:3 X 1 AMPOULE
     Route: 042
     Dates: start: 20110918, end: 20110919
  5. RAMIPRIL [Concomitant]
     Route: 048
     Dates: start: 20110829, end: 20110919
  6. AMLODIPINE [Concomitant]
     Route: 048
     Dates: start: 20110919, end: 20110919
  7. VANCOMYCIN [Suspect]
     Route: 042
     Dates: start: 20110920, end: 20110920
  8. AMIKACIN [Suspect]
     Route: 042
     Dates: start: 20110920, end: 20110921
  9. DASATINIB [Suspect]
     Indication: ACUTE MYELOID LEUKAEMIA
     Dates: start: 20110912, end: 20110920
  10. MCP [Concomitant]
     Indication: NAUSEA
     Dosage: 1 DF: 1 TABS
     Route: 048
     Dates: start: 20110919, end: 20110919
  11. CYTARABINE [Suspect]
     Indication: ACUTE MYELOID LEUKAEMIA
     Dates: start: 20110906, end: 20110908
  12. ZYVOX [Suspect]
     Route: 042
     Dates: start: 20110920, end: 20110921

REACTIONS (3)
  - PHARYNGEAL OEDEMA [None]
  - GINGIVAL DISORDER [None]
  - OBSTRUCTIVE AIRWAYS DISORDER [None]
